FAERS Safety Report 21290065 (Version 1)
Quarter: 2022Q3

REPORT INFORMATION
  Report Type: Spontaneous
  Country: FR (occurrence: FR)
  Receive Date: 20220902
  Receipt Date: 20220902
  Transmission Date: 20221027
  Serious: Yes (Hospitalization)
  Sender: FDA-Public Use
  Company Number: None

PATIENT
  Age: 54 Year
  Sex: Male
  Weight: 46.7 kg

DRUGS (3)
  1. TAMOXIFEN [Suspect]
     Active Substance: TAMOXIFEN
     Indication: Breast cancer
     Dosage: 20 MILLIGRAM DAILY; 1-0-0 , THERAPY START DATE :NASK
     Dates: end: 20220623
  2. FUROSEMIDE [Suspect]
     Active Substance: FUROSEMIDE
     Indication: Product used for unknown indication
     Dosage: UNIT DOSE : 160 MG , FREQUENCY TIME : 1 DAY , THERAPY START DATE :NASK
     Dates: end: 20220624
  3. REPAGLINIDE [Suspect]
     Active Substance: REPAGLINIDE
     Indication: Diabetes mellitus
     Dosage: 6 MILLIGRAM DAILY; 2 MG 1-1-1 , UNIT DOSE : 6 MG , FREQUENCY TIME : 1 DAY , THERAPY START DATE :NASK
     Dates: end: 20220624

REACTIONS (1)
  - Haemophagocytic lymphohistiocytosis [Recovering/Resolving]

NARRATIVE: CASE EVENT DATE: 20220617
